FAERS Safety Report 7467567-0 (Version None)
Quarter: 2011Q2

REPORT INFORMATION
  Report Type: 
  Country: None (occurrence: None)
  Receive Date: 20110505
  Receipt Date: 20110505
  Transmission Date: 20111010
  Serious: Yes (Hospitalization)
  Sender: FDA-Public Use
  Company Number: None

PATIENT
  Age: 91 Year
  Sex: Male
  Weight: 88.8 kg

DRUGS (2)
  1. SALSALATE [Suspect]
     Indication: PAIN
     Dates: start: 20051031, end: 20100625
  2. ASPIRIN [Suspect]
     Dosage: 81 MG EVERY DAY PO
     Route: 048
     Dates: start: 20080904, end: 20100625

REACTIONS (2)
  - DYSPHAGIA [None]
  - ANGIOEDEMA [None]
